FAERS Safety Report 14270549 (Version 1)
Quarter: 2017Q4

REPORT INFORMATION
  Report Type: Spontaneous
  Country: SE (occurrence: SE)
  Receive Date: 20171211
  Receipt Date: 20171211
  Transmission Date: 20180321
  Serious: Yes (Other)
  Sender: FDA-Public Use
  Company Number: SE-OTSUKA-2015_006147

PATIENT

DRUGS (1)
  1. ABILIFY [Suspect]
     Active Substance: ARIPIPRAZOLE
     Indication: MOOD SWINGS
     Dosage: 0.5 MG, QD
     Route: 048
     Dates: end: 20150604

REACTIONS (4)
  - Nausea [Unknown]
  - Haematemesis [Recovered/Resolved with Sequelae]
  - Off label use [Unknown]
  - Epilepsy [Recovered/Resolved with Sequelae]

NARRATIVE: CASE EVENT DATE: 201502
